FAERS Safety Report 9161130 (Version 1)
Quarter: 2013Q1

REPORT INFORMATION
  Report Type: Spontaneous
  Country: CH (occurrence: CH)
  Receive Date: 20130313
  Receipt Date: 20130313
  Transmission Date: 20140127
  Serious: No
  Sender: FDA-Public Use
  Company Number: CH-009507513-1303CHE005410

PATIENT
  Age: 29 Year
  Sex: Male
  Weight: 70 kg

DRUGS (2)
  1. SYCREST [Suspect]
     Indication: MANIA
     Dosage: 5 MG, TOTAL
     Route: 048
     Dates: start: 20130124, end: 20130124
  2. ZUCLOPENTHIXOL [Concomitant]
     Indication: BIPOLAR DISORDER
     Dosage: 20 MG, QD
     Dates: start: 20130116, end: 20130215

REACTIONS (3)
  - Swollen tongue [Recovered/Resolved]
  - Dizziness [Recovered/Resolved]
  - Drug administration error [Recovered/Resolved]
